FAERS Safety Report 18119698 (Version 3)
Quarter: 2021Q2

REPORT INFORMATION
  Report Type: Spontaneous
  Country: US (occurrence: US)
  Receive Date: 20200806
  Receipt Date: 20210625
  Transmission Date: 20210717
  Serious: Yes (Other)
  Sender: FDA-Public Use
  Company Number: US-GILEAD-2020-0487217

PATIENT
  Age: 56 Year
  Sex: Male
  Weight: 180 kg

DRUGS (31)
  1. DESCOVY [Concomitant]
     Active Substance: EMTRICITABINE\TENOFOVIR ALAFENAMIDE FUMARATE
  2. TAMSULOSIN [Concomitant]
     Active Substance: TAMSULOSIN
  3. TRUVADA [Suspect]
     Active Substance: EMTRICITABINE\TENOFOVIR DISOPROXIL FUMARATE
     Indication: HIV INFECTION
     Dosage: UNK
     Route: 048
     Dates: start: 20050107, end: 201512
  4. CALCIUM + VITAMIN D3 [Concomitant]
     Active Substance: CALCIUM\CHOLECALCIFEROL
  5. VIRACEPT [Concomitant]
     Active Substance: NELFINAVIR MESYLATE
  6. ZERIT [Concomitant]
     Active Substance: STAVUDINE
  7. SYMTUZA [Concomitant]
     Active Substance: COBICISTAT\DARUNAVIR\EMTRICITABINE\TENOFOVIR ALAFENAMIDE
  8. AMOXICILLIN. [Concomitant]
     Active Substance: AMOXICILLIN
  9. CORTISONE [Concomitant]
     Active Substance: CORTISONE
  10. FLEET LAXATIVE [Concomitant]
  11. OMEPRAZOLE. [Concomitant]
     Active Substance: OMEPRAZOLE
  12. INVIRASE [Concomitant]
     Active Substance: SAQUINAVIR MESYLATE
  13. PENICILLIN NOS [Concomitant]
     Active Substance: PENICILLIN
  14. SUSTIVA [Concomitant]
     Active Substance: EFAVIRENZ
  15. VIRAMUNE XR [Concomitant]
     Active Substance: NEVIRAPINE
  16. WELLBUTRIN XL [Concomitant]
     Active Substance: BUPROPION HYDROCHLORIDE
  17. VASCEPA [Concomitant]
     Active Substance: ICOSAPENT ETHYL
  18. FLOMAX [Concomitant]
     Active Substance: TAMSULOSIN HYDROCHLORIDE
  19. EPIVIR [Concomitant]
     Active Substance: LAMIVUDINE
  20. SIMVASTATIN. [Concomitant]
     Active Substance: SIMVASTATIN
  21. VIRAMUNE [Concomitant]
     Active Substance: NEVIRAPINE
  22. GENVOYA [Concomitant]
     Active Substance: COBICISTAT\ELVITEGRAVIR\EMTRICITABINE\TENOFOVIR ALAFENAMIDE FUMARATE
  23. ASPIRIN (E.C.) [Concomitant]
     Active Substance: ASPIRIN
  24. TADALAFIL. [Concomitant]
     Active Substance: TADALAFIL
  25. ACETAMINOPHEN. [Concomitant]
     Active Substance: ACETAMINOPHEN
  26. RETROVIR [Concomitant]
     Active Substance: ZIDOVUDINE
  27. TIVICAY [Concomitant]
     Active Substance: DOLUTEGRAVIR SODIUM
  28. TRIZIVIR [Concomitant]
     Active Substance: ABACAVIR SULFATE\LAMIVUDINE\ZIDOVUDINE
  29. ALPRAZOLAM. [Concomitant]
     Active Substance: ALPRAZOLAM
  30. DICYCLOMINE [Concomitant]
     Active Substance: DICYCLOMINE HYDROCHLORIDE
  31. XYOSTED [Concomitant]
     Active Substance: TESTOSTERONE ENANTHATE

REACTIONS (14)
  - Osteonecrosis [Unknown]
  - Bone density decreased [Unknown]
  - Fatigue [Not Recovered/Not Resolved]
  - Creatinine urine increased [Unknown]
  - Osteopenia [Not Recovered/Not Resolved]
  - Anxiety [Not Recovered/Not Resolved]
  - Chronic kidney disease [Not Recovered/Not Resolved]
  - Tooth disorder [Unknown]
  - Emotional distress [Not Recovered/Not Resolved]
  - Renal failure [Not Recovered/Not Resolved]
  - Pain [Not Recovered/Not Resolved]
  - Bone loss [Not Recovered/Not Resolved]
  - Tooth loss [Not Recovered/Not Resolved]
  - Asthenia [Not Recovered/Not Resolved]

NARRATIVE: CASE EVENT DATE: 201701
